FAERS Safety Report 23741891 (Version 2)
Quarter: 2024Q2

REPORT INFORMATION
  Report Type: Spontaneous
  Country: US (occurrence: US)
  Receive Date: 20240415
  Receipt Date: 20240422
  Transmission Date: 20240716
  Serious: Yes (Other)
  Sender: FDA-Public Use
  Company Number: US-BRISTOL-MYERS SQUIBB COMPANY-2024-058124

PATIENT
  Age: 75 Year
  Sex: Female

DRUGS (3)
  1. ORENCIA [Suspect]
     Active Substance: ABATACEPT
     Indication: Rheumatoid arthritis
     Route: 042
     Dates: start: 201812
  2. ORENCIA [Suspect]
     Active Substance: ABATACEPT
     Dates: start: 202101
  3. DUPIXENT [Concomitant]
     Active Substance: DUPILUMAB
     Indication: Dermatitis atopic
     Dates: start: 202201

REACTIONS (2)
  - Eye pain [Unknown]
  - Cataract [Unknown]

NARRATIVE: CASE EVENT DATE: 20230101
